FAERS Safety Report 11444010 (Version 3)
Quarter: 2015Q4

REPORT INFORMATION
  Report Type: Spontaneous
  Country: FR (occurrence: FR)
  Receive Date: 20150901
  Receipt Date: 20151021
  Transmission Date: 20160304
  Serious: Yes (Other)
  Sender: FDA-Public Use
  Company Number: FR-AMGEN-FRASP2015087897

PATIENT
  Sex: Female

DRUGS (5)
  1. CERAZETTE /00754001/ [Suspect]
     Active Substance: DESOGESTREL
     Indication: CONTRACEPTION
     Dosage: UNK
     Route: 065
  2. ENBREL [Suspect]
     Active Substance: ETANERCEPT
     Indication: EXPOSURE VIA PARTNER
     Dosage: UNK
     Route: 050
  3. ENBREL [Suspect]
     Active Substance: ETANERCEPT
     Indication: PSORIATIC ARTHROPATHY
  4. ARAVA [Suspect]
     Active Substance: LEFLUNOMIDE
     Indication: PSORIATIC ARTHROPATHY
  5. ARAVA [Suspect]
     Active Substance: LEFLUNOMIDE
     Indication: EXPOSURE VIA PARTNER
     Dosage: UNK
     Route: 050

REACTIONS (5)
  - Exposure via partner [Unknown]
  - Umbilical cord abnormality [Unknown]
  - Drug ineffective [Unknown]
  - Unintended pregnancy [Unknown]
  - Foetal death [Unknown]

NARRATIVE: CASE EVENT DATE: 201404
